FAERS Safety Report 9748848 (Version 2)
Quarter: 2013Q4

REPORT INFORMATION
  Report Type: Spontaneous
  Country: US (occurrence: US)
  Receive Date: 20131212
  Receipt Date: 20131212
  Transmission Date: 20140711
  Serious: No
  Sender: FDA-Public Use
  Company Number: US-INCYTE CORPORATION-2013IN001429

PATIENT
  Sex: Female
  Weight: 78 kg

DRUGS (8)
  1. JAKAFI [Suspect]
     Indication: MYELOFIBROSIS
     Dosage: 5 MG, BID
     Route: 048
     Dates: start: 20120613, end: 20130501
  2. FLONASE [Concomitant]
  3. CELEXA [Concomitant]
  4. NEXIUM [Concomitant]
  5. ZOFRAN [Concomitant]
  6. ALLEGRA [Concomitant]
  7. SUDAFED [Concomitant]
  8. CRESTOR [Concomitant]

REACTIONS (4)
  - Sinusitis [Unknown]
  - Nasal congestion [Unknown]
  - Adverse drug reaction [Unknown]
  - Drug ineffective [Unknown]
